FAERS Safety Report 9457418 (Version 1)
Quarter: 2013Q3

REPORT INFORMATION
  Report Type: Spontaneous
  Country: FR (occurrence: None)
  Receive Date: 20130812
  Receipt Date: 20130812
  Transmission Date: 20140515
  Serious: Yes (Hospitalization)
  Sender: FDA-Public Use
  Company Number: 2013000191

PATIENT
  Age: 83 Year
  Sex: Female

DRUGS (4)
  1. ACEON [Suspect]
     Indication: HYPERTENSION
     Route: 048
     Dates: start: 201304, end: 20130503
  2. ELISOR (PRAVASATATIN SODIUM) [Concomitant]
  3. INIPOMP (PANTOPRAZOLE SODIUM) [Concomitant]
  4. L-THYROXINE [Suspect]

REACTIONS (4)
  - Loss of consciousness [None]
  - Malaise [None]
  - Orthostatic hypotension [None]
  - Urinary incontinence [None]
